FAERS Safety Report 4833148-8 (Version None)
Quarter: 2005Q4

REPORT INFORMATION
  Report Type: 
  Country: None (occurrence: None)
  Receive Date: 20051117
  Receipt Date: 20051104
  Transmission Date: 20060501
  Serious: Yes (Hospitalization, Other)
  Sender: FDA-Public Use
  Company Number: 2005143441

PATIENT
  Age: 66 Year
  Sex: Male
  Weight: 124.7392 kg

DRUGS (23)
  1. NEURONTIN [Suspect]
     Indication: PAIN IN EXTREMITY
     Dosage: 3000 MG (1000 MG, 3 IN 1 D)
     Dates: start: 19980101, end: 20050801
  2. SOTALOL HCL [Concomitant]
  3. GLYBURIDE [Concomitant]
  4. FLOMAX [Concomitant]
  5. PROSCAR [Concomitant]
  6. PYRIDIUM (PHENAZOPYRIDINE HYDROCHLORIDE) [Concomitant]
  7. ZAROXOLYN [Concomitant]
  8. LASIX [Concomitant]
  9. ROBAXIN [Concomitant]
  10. DESYREL [Concomitant]
  11. PREDNISONE [Concomitant]
  12. ZOCOR [Concomitant]
  13. PROTONIX [Concomitant]
  14. POTASSIUM (POTASSIUM) [Concomitant]
  15. XANAX [Concomitant]
  16. LORCET-HD [Concomitant]
  17. DURAGESIC-100 [Concomitant]
  18. TRAZODONE HCL [Concomitant]
  19. TRICOR [Concomitant]
  20. ADVAIR DISKUS 100/50 [Concomitant]
  21. COMBIVENT [Concomitant]
  22. ALBUTEROL [Concomitant]
  23. BECONASE (BECLOMETASONE DIPROPIONATE) [Concomitant]

REACTIONS (7)
  - CONDITION AGGRAVATED [None]
  - DIFFICULTY IN WALKING [None]
  - FLUID RETENTION [None]
  - MOBILITY DECREASED [None]
  - PNEUMONIA [None]
  - TREATMENT NONCOMPLIANCE [None]
  - WEIGHT DECREASED [None]
